FAERS Safety Report 4575252-8 (Version None)
Quarter: 2005Q1

REPORT INFORMATION
  Report Type: 
  Country: None (occurrence: None)
  Receive Date: 20050118
  Receipt Date: 20040123
  Transmission Date: 20050727
  Serious: Yes (Hospitalization)
  Sender: FDA-Public Use
  Company Number: HQWYE579527JAN04

PATIENT
  Age: 66 Year
  Sex: Female
  Weight: 70.37 kg

DRUGS (5)
  1. PREMPRO [Suspect]
     Indication: HORMONE REPLACEMENT THERAPY
     Dosage: 0.625MG/2.5 MG ONCE TABLET DAILY, ORAL
     Route: 048
     Dates: start: 19970401, end: 20020514
  2. GLUCOPHAGE [Concomitant]
  3. AMARYL [Concomitant]
  4. GLUCOPPHAGE [Concomitant]
  5. AMARYL [Concomitant]

REACTIONS (1)
  - CEREBROVASCULAR ACCIDENT [None]
